FAERS Safety Report 13544941 (Version 2)
Quarter: 2017Q2

REPORT INFORMATION
  Report Type: Spontaneous
  Country: US (occurrence: US)
  Receive Date: 20170515
  Receipt Date: 20170522
  Transmission Date: 20170830
  Serious: No
  Sender: FDA-Public Use
  Company Number: US-GLAXOSMITHKLINE-US2017068210

PATIENT
  Sex: Male

DRUGS (2)
  1. AUGMENTIN [Suspect]
     Active Substance: AMOXICILLIN\CLAVULANATE POTASSIUM
     Indication: SINUSITIS
     Dosage: UNK UNK, U
  2. FLONASE ALLERGY RELIEF [Suspect]
     Active Substance: FLUTICASONE PROPIONATE
     Indication: SINUSITIS
     Dosage: UNK UNK, U

REACTIONS (13)
  - Feeling jittery [Unknown]
  - Product use in unapproved indication [Unknown]
  - Anxiety [Unknown]
  - Pain in extremity [Recovering/Resolving]
  - Hunger [Unknown]
  - Muscle spasms [Unknown]
  - Varicose vein [Unknown]
  - Ill-defined disorder [Unknown]
  - Myalgia [Unknown]
  - Paraesthesia [Unknown]
  - Feeling abnormal [Unknown]
  - Drug ineffective for unapproved indication [Unknown]
  - Drug ineffective [Unknown]
